FAERS Safety Report 6357912-1 (Version None)
Quarter: 2009Q3

REPORT INFORMATION
  Report Type: 
  Country: None (occurrence: None)
  Receive Date: 20090916
  Receipt Date: 20090914
  Transmission Date: 20100115
  Serious: Yes (Other)
  Sender: FDA-Public Use
  Company Number: US-B.I. PHARMACEUTICALS,INC./RIDGEFIELD-2009-BP-10818BP

PATIENT
  Sex: Female

DRUGS (3)
  1. SPIRIVA [Suspect]
     Indication: ASTHMA
     Dosage: 18 MCG
     Route: 055
     Dates: start: 20070101
  2. LEVOTHYROXINE SODIUM [Concomitant]
     Indication: HYPOTHYROIDISM
     Dosage: 75 MCG
     Route: 048
     Dates: start: 20000101
  3. ADVAIR HFA [Concomitant]
     Indication: ASTHMA
     Route: 055
     Dates: start: 20070101

REACTIONS (3)
  - DYSPNOEA [None]
  - MALIGNANT MELANOMA [None]
  - OESOPHAGEAL ACHALASIA [None]
